FAERS Safety Report 7383938-5 (Version None)
Quarter: 2011Q1

REPORT INFORMATION
  Report Type: 
  Country: None (occurrence: None)
  Receive Date: 20110330
  Receipt Date: 20110324
  Transmission Date: 20110831
  Serious: Yes (Other)
  Sender: FDA-Public Use
  Company Number: ES-PFIZER INC-2011066517

PATIENT
  Age: 66 Year
  Sex: Female

DRUGS (1)
  1. ZITHROMAX [Suspect]

REACTIONS (3)
  - ABDOMINAL DISCOMFORT [None]
  - VOMITING [None]
  - LOSS OF CONSCIOUSNESS [None]
